FAERS Safety Report 6074703-X (Version None)
Quarter: 2009Q1

REPORT INFORMATION
  Report Type: 
  Country: None (occurrence: None)
  Receive Date: 20090209
  Receipt Date: 20090209
  Transmission Date: 20090719
  Serious: Yes (Other)
  Sender: FDA-Public Use
  Company Number: None

PATIENT
  Age: 56 Year
  Sex: Female
  Weight: 57.6 kg

DRUGS (2)
  1. BUCKLEY'S COUGH, COLD + FLU NIGHTIME RELIEF EXTRA STRENGTH (NCH)(ACETA [Suspect]
     Indication: NASOPHARYNGITIS
     Dosage: 2 DF, QD, ORAL
     Route: 048
     Dates: start: 20090101, end: 20090107
  2. BUCKLEY'S COUGH, COLD + FLU DAYTIME RELIEF EXTRA STRENGTH (NCH)(ACETAM [Suspect]
     Indication: NASOPHARYNGITIS
     Dosage: 1 DF, QD, ORAL
     Route: 048
     Dates: start: 20090103, end: 20090103

REACTIONS (6)
  - AGEUSIA [None]
  - AGITATION [None]
  - ANOSMIA [None]
  - FEELING JITTERY [None]
  - NERVOUSNESS [None]
  - PSYCHOMOTOR HYPERACTIVITY [None]
